FAERS Safety Report 5093982-9 (Version None)
Quarter: 2006Q3

REPORT INFORMATION
  Report Type: 
  Country: None (occurrence: None)
  Receive Date: 20060831
  Receipt Date: 20060821
  Transmission Date: 20061208
  Serious: Yes (Other)
  Sender: FDA-Public Use
  Company Number: US-AVENTIS-200617161US

PATIENT
  Sex: Male
  Weight: 106 kg

DRUGS (10)
  1. TAXOTERE [Suspect]
     Dosage: DOSE: UNKNOWN
     Dates: start: 20060801
  2. DECADRON [Suspect]
  3. COUMADIN [Suspect]
     Dosage: DOSE: UNK
  4. RADIATION [Suspect]
  5. TIAZAC [Concomitant]
  6. NEXIUM [Concomitant]
  7. BACTRIM [Concomitant]
  8. REQUIP [Concomitant]
     Dosage: DOSE: UNK
  9. INSULIN [Concomitant]
     Dosage: DOSE: SLINDING SCALE
  10. ALL OTHER THERAPEUTIC PRODUCTS [Concomitant]
     Dosage: DOSE: UNK

REACTIONS (6)
  - BLOOD URINE PRESENT [None]
  - CONFUSIONAL STATE [None]
  - FALL [None]
  - HYPERGLYCAEMIA [None]
  - MALAISE [None]
  - RENAL FAILURE [None]
